FAERS Safety Report 24672679 (Version 2)
Quarter: 2024Q4

REPORT INFORMATION
  Report Type: Report from Study
  Country: US (occurrence: US)
  Receive Date: 20241127
  Receipt Date: 20241204
  Transmission Date: 20250114
  Serious: Yes (Other)
  Sender: ABBVIE
  Company Number: US-ABBVIE-6018418

PATIENT
  Age: 62 Year
  Sex: Female
  Weight: 79 kg

DRUGS (3)
  1. SYNTHROID [Suspect]
     Active Substance: LEVOTHYROXINE SODIUM
     Indication: Autoimmune thyroiditis
     Dosage: FORM STRENGTH: 200 MICROGRAM
     Route: 048
     Dates: start: 1996
  2. CYTOMEL [Concomitant]
     Active Substance: LIOTHYRONINE SODIUM
     Indication: Autoimmune thyroiditis
  3. ATENOLOL [Concomitant]
     Active Substance: ATENOLOL
     Indication: Hypertension

REACTIONS (6)
  - Deafness bilateral [Not Recovered/Not Resolved]
  - Dental care [Recovered/Resolved]
  - Anaemia [Not Recovered/Not Resolved]
  - Tinnitus [Not Recovered/Not Resolved]
  - Osteoarthritis [Recovered/Resolved]
  - Blood cholesterol increased [Not Recovered/Not Resolved]

NARRATIVE: CASE EVENT DATE: 20190801
